FAERS Safety Report 17130903 (Version 1)
Quarter: 2019Q4

REPORT INFORMATION
  Report Type: Spontaneous
  Country: US (occurrence: US)
  Receive Date: 20191209
  Receipt Date: 20191209
  Transmission Date: 20200122
  Serious: Yes (Death)
  Sender: FDA-Public Use
  Company Number: US-ROCHE-2424043

PATIENT
  Age: 7 Year
  Sex: Male
  Weight: 20 kg

DRUGS (3)
  1. DIAZEPAM. [Suspect]
     Active Substance: DIAZEPAM
     Indication: ANALGESIC THERAPY
     Route: 042
  2. METHOHEXITAL [Suspect]
     Active Substance: METHOHEXITAL
     Indication: ANALGESIC THERAPY
     Route: 065
  3. PENTAZOCINE [Suspect]
     Active Substance: PENTAZOCINE
     Indication: ANALGESIC THERAPY
     Route: 042

REACTIONS (1)
  - Overdose [Fatal]
